FAERS Safety Report 4523791-8 (Version None)
Quarter: 2004Q4

REPORT INFORMATION
  Report Type: 
  Country: None (occurrence: None)
  Receive Date: 20041119
  Receipt Date: 20040826
  Transmission Date: 20050328
  Serious: No
  Sender: FDA-Public Use
  Company Number: PHEH2004US09269

PATIENT
  Sex: Female

DRUGS (2)
  1. ZELNORM [Suspect]
     Indication: IRRITABLE BOWEL SYNDROME
     Dosage: 6 MG  ; 2 MG  : QD, ORAL
     Route: 048
     Dates: start: 20040201, end: 20040101
  2. ZELNORM [Suspect]
     Indication: IRRITABLE BOWEL SYNDROME
     Dosage: 6 MG  ; 2 MG  : QD, ORAL
     Route: 048
     Dates: start: 20040511

REACTIONS (1)
  - ALOPECIA [None]
